FAERS Safety Report 16903912 (Version 1)
Quarter: 2019Q4

REPORT INFORMATION
  Report Type: Spontaneous
  Country: US (occurrence: US)
  Receive Date: 20191009
  Receipt Date: 20191009
  Transmission Date: 20200122
  Serious: No
  Sender: FDA-Public Use
  Company Number: None

PATIENT

DRUGS (2)
  1. DEXLANSOPRAZOLE [Suspect]
     Active Substance: DEXLANSOPRAZOLE
  2. RABEPRAZOLE [Suspect]
     Active Substance: RABEPRAZOLE

REACTIONS (3)
  - Abdominal pain [None]
  - Throat irritation [None]
  - Gastrooesophageal reflux disease [None]
